FAERS Safety Report 21373107 (Version 5)
Quarter: 2023Q2

REPORT INFORMATION
  Report Type: Report from Study
  Country: US (occurrence: US)
  Receive Date: 20220924
  Receipt Date: 20230511
  Transmission Date: 20230722
  Serious: Yes (Other)
  Sender: FDA-Public Use
  Company Number: US-ABBVIE-4129751

PATIENT
  Age: 65 Year
  Sex: Male

DRUGS (2)
  1. IMBRUVICA [Suspect]
     Active Substance: IBRUTINIB
     Indication: Chronic lymphocytic leukaemia
     Route: 048
     Dates: start: 202205
  2. IMBRUVICA [Suspect]
     Active Substance: IBRUTINIB
     Indication: Chronic lymphocytic leukaemia
     Route: 048

REACTIONS (11)
  - Loss of consciousness [Unknown]
  - Skin cancer [Unknown]
  - Hypertension [Unknown]
  - Inappropriate schedule of product administration [Unknown]
  - Depression [Unknown]
  - Muscle strain [Unknown]
  - Haemorrhage [Unknown]
  - Blood potassium decreased [Unknown]
  - Myalgia [Unknown]
  - Balance disorder [Unknown]
  - Tooth fracture [Unknown]

NARRATIVE: CASE EVENT DATE: 20220901
